FAERS Safety Report 23179756 (Version 1)
Quarter: 2023Q4

REPORT INFORMATION
  Report Type: Spontaneous
  Country: US (occurrence: US)
  Receive Date: 20231114
  Receipt Date: 20231114
  Transmission Date: 20240110
  Serious: No
  Sender: FDA-Public Use
  Company Number: US-BRISTOL-MYERS SQUIBB COMPANY-2023-163216

PATIENT
  Age: 45 Year
  Sex: Male
  Weight: 119.29 kg

DRUGS (4)
  1. CAMZYOS [Suspect]
     Active Substance: MAVACAMTEN
     Indication: Cardiac disorder
     Dosage: FREQUENCY: ONCE A DAY, IN THE MORNING
     Route: 048
     Dates: start: 2023
  2. ATORVASTATIN [Concomitant]
     Active Substance: ATORVASTATIN
     Indication: Product used for unknown indication
  3. METOPROLOL [Concomitant]
     Active Substance: METOPROLOL
     Indication: Product used for unknown indication
     Dosage: 25 MG OR 50 MG, REPORTER WAS NOT SURE
  4. ASPIRIN [Concomitant]
     Active Substance: ASPIRIN
     Indication: Product used for unknown indication

REACTIONS (1)
  - Off label use [Unknown]

NARRATIVE: CASE EVENT DATE: 20231113
